FAERS Safety Report 9295243 (Version 6)
Quarter: 2014Q2

REPORT INFORMATION
  Report Type: Spontaneous
  Country: US (occurrence: US)
  Receive Date: 20130517
  Receipt Date: 20140616
  Transmission Date: 20141212
  Serious: Yes (Hospitalization, Disabling, Other)
  Sender: FDA-Public Use
  Company Number: US-009507513-1305USA009292

PATIENT
  Sex: Male
  Weight: 97.52 kg

DRUGS (2)
  1. PROPECIA [Suspect]
     Indication: ANDROGENETIC ALOPECIA
     Dosage: 1 MG, UNK
     Route: 048
     Dates: end: 2009
  2. DEXEDRINE [Concomitant]
     Dosage: UNK
     Dates: start: 1990

REACTIONS (83)
  - Anxiety [Not Recovered/Not Resolved]
  - Suicide attempt [Unknown]
  - Bipolar disorder [Not Recovered/Not Resolved]
  - Skin graft [Unknown]
  - Depression [Unknown]
  - Pneumonia aspiration [Recovering/Resolving]
  - Respiratory failure [Recovered/Resolved]
  - Accidental overdose [Recovering/Resolving]
  - Osteopenia [Unknown]
  - Testicular atrophy [Unknown]
  - Iron deficiency anaemia [Not Recovered/Not Resolved]
  - Hypothyroidism [Not Recovered/Not Resolved]
  - Type 2 diabetes mellitus [Not Recovered/Not Resolved]
  - Scrotal varicose veins [Unknown]
  - Attention deficit/hyperactivity disorder [Unknown]
  - Hyperlipidaemia [Not Recovered/Not Resolved]
  - Dysuria [Unknown]
  - Back pain [Not Recovered/Not Resolved]
  - Dyspnoea [Not Recovered/Not Resolved]
  - Tooth abscess [Unknown]
  - Dental caries [Unknown]
  - Joint crepitation [Unknown]
  - Weight increased [Unknown]
  - Nausea [Not Recovered/Not Resolved]
  - Vomiting [Not Recovered/Not Resolved]
  - Feeling abnormal [Unknown]
  - Adverse event [Unknown]
  - Otorrhoea [Unknown]
  - Hypogonadism [Not Recovered/Not Resolved]
  - Testicular failure [Not Recovered/Not Resolved]
  - Migraine [Not Recovered/Not Resolved]
  - Proctalgia [Unknown]
  - Weight increased [Unknown]
  - Hyperhidrosis [Unknown]
  - Feeling hot [Unknown]
  - Alopecia [Unknown]
  - Genital rash [Unknown]
  - Dysphonia [Unknown]
  - High risk sexual behaviour [Unknown]
  - Herpes simplex [Not Recovered/Not Resolved]
  - Herpes zoster [Not Recovered/Not Resolved]
  - Melanocytic naevus [Not Recovered/Not Resolved]
  - Psychosexual disorder [Not Recovered/Not Resolved]
  - Diabetic neuropathy [Not Recovered/Not Resolved]
  - Deep vein thrombosis [Not Recovered/Not Resolved]
  - Haemorrhoids [Not Recovered/Not Resolved]
  - Acute sinusitis [Unknown]
  - Upper respiratory tract infection [Unknown]
  - Bronchitis [Unknown]
  - Nasal septum deviation [Unknown]
  - Asthma [Not Recovered/Not Resolved]
  - Gastrooesophageal reflux disease [Not Recovered/Not Resolved]
  - Colitis [Not Recovered/Not Resolved]
  - Rectal haemorrhage [Not Recovered/Not Resolved]
  - Urinary tract infection [Not Recovered/Not Resolved]
  - Benign prostatic hyperplasia [Not Recovered/Not Resolved]
  - Acne [Not Recovered/Not Resolved]
  - Syncope [Not Recovered/Not Resolved]
  - Skin lesion [Not Recovered/Not Resolved]
  - Insomnia [Not Recovered/Not Resolved]
  - Oedema [Not Recovered/Not Resolved]
  - Headache [Not Recovered/Not Resolved]
  - Chest pain [Not Recovered/Not Resolved]
  - Abdominal pain upper [Not Recovered/Not Resolved]
  - Abdominal pain lower [Not Recovered/Not Resolved]
  - Abdominal pain [Not Recovered/Not Resolved]
  - Road traffic accident [Not Recovered/Not Resolved]
  - Mole excision [Unknown]
  - Neck pain [Not Recovered/Not Resolved]
  - Erectile dysfunction [Not Recovered/Not Resolved]
  - Osteoarthritis [Unknown]
  - Atrial fibrillation [Unknown]
  - Lentigo [Unknown]
  - Blood testosterone decreased [Unknown]
  - Dysplastic naevus [Unknown]
  - Sexual dysfunction [Not Recovered/Not Resolved]
  - Gynaecomastia [Not Recovered/Not Resolved]
  - Testicular pain [Unknown]
  - Libido decreased [Unknown]
  - Cognitive disorder [Unknown]
  - Ejaculation disorder [Unknown]
  - Ejaculation failure [Unknown]
  - Reproductive tract disorder [Unknown]
